FAERS Safety Report 9590365 (Version 1)
Quarter: 2013Q4

REPORT INFORMATION
  Report Type: Spontaneous
  Country: US (occurrence: US)
  Receive Date: 20131003
  Receipt Date: 20131003
  Transmission Date: 20140711
  Serious: No
  Sender: FDA-Public Use
  Company Number: US-AMGEN-USASP2012077024

PATIENT
  Age: 37 Year
  Sex: Female

DRUGS (4)
  1. ENBREL [Suspect]
     Indication: PRODUCT USED FOR UNKNOWN INDICATION
     Dosage: 25 MG, 2 TIMES/WK
  2. METHOTREXATE [Concomitant]
     Dosage: 2.5 MG, UNK
  3. DOXYCYCLINE HYDROCHLORIDE [Concomitant]
     Dosage: 100 MG, UNK
  4. FOLIC ACID [Concomitant]
     Dosage: 5 MG, UNK

REACTIONS (1)
  - Abdominal pain [Unknown]
